FAERS Safety Report 24269176 (Version 1)
Quarter: 2024Q3

REPORT INFORMATION
  Report Type: Spontaneous
  Country: KR (occurrence: None)
  Receive Date: 20240830
  Receipt Date: 20240830
  Transmission Date: 20241016
  Serious: Yes (Disabling)
  Sender: Public
  Company Number: None

PATIENT
  Age: 71 Year
  Sex: Male
  Weight: 62 kg

DRUGS (4)
  1. RIVOTRIL [Suspect]
     Active Substance: CLONAZEPAM
     Indication: Insomnia
     Dates: start: 20230316, end: 20240610
  2. Starevo [Concomitant]
  3. AZILECT [Concomitant]
  4. prapexsol [Concomitant]

REACTIONS (12)
  - Fall [None]
  - Cognitive disorder [None]
  - Dysarthria [None]
  - Fall [None]
  - Gait inability [None]
  - Myalgia [None]
  - Seizure [None]
  - Hallucination [None]
  - Pollakiuria [None]
  - Loss of therapeutic response [None]
  - Drug ineffective [None]
  - Withdrawal syndrome [None]

NARRATIVE: CASE EVENT DATE: 20240610
